FAERS Safety Report 20742079 (Version 1)
Quarter: 2022Q2

REPORT INFORMATION
  Report Type: Spontaneous
  Country: KR (occurrence: KR)
  Receive Date: 20220423
  Receipt Date: 20220423
  Transmission Date: 20220721
  Serious: Yes (Other)
  Sender: FDA-Public Use
  Company Number: KR-Accord-261559

PATIENT
  Age: 77 Year
  Sex: Male

DRUGS (1)
  1. APIXABAN [Suspect]
     Active Substance: APIXABAN
     Indication: Atrial fibrillation

REACTIONS (1)
  - Idiopathic interstitial pneumonia [Recovered/Resolved]
